FAERS Safety Report 24144995 (Version 2)
Quarter: 2024Q3

REPORT INFORMATION
  Report Type: Spontaneous
  Country: PT (occurrence: PT)
  Receive Date: 20240729
  Receipt Date: 20240930
  Transmission Date: 20241016
  Serious: Yes (Life-Threatening, Hospitalization, Other)
  Sender: AUROBINDO
  Company Number: PT-AUROBINDO-AUR-APL-2024-037274

PATIENT
  Age: 82 Year
  Sex: Male

DRUGS (1)
  1. CAPECITABINE [Suspect]
     Active Substance: CAPECITABINE
     Indication: Rectosigmoid cancer
     Dosage: UNK FIRST, CYCLICAL
     Route: 048

REACTIONS (11)
  - Mucosal inflammation [Unknown]
  - Pyrexia [Not Recovered/Not Resolved]
  - Diarrhoea [Unknown]
  - Hypotension [Unknown]
  - Palmar-plantar erythrodysaesthesia syndrome [Unknown]
  - Septic shock [Unknown]
  - Acute kidney injury [Recovered/Resolved]
  - Craniocerebral injury [Unknown]
  - Neutropenia [Recovered/Resolved]
  - Febrile neutropenia [Recovering/Resolving]
  - Asthenia [Unknown]
